FAERS Safety Report 9567263 (Version 1)
Quarter: 2013Q3

REPORT INFORMATION
  Report Type: Spontaneous
  Country: US (occurrence: US)
  Receive Date: 20130930
  Receipt Date: 20130930
  Transmission Date: 20140515
  Serious: No
  Sender: FDA-Public Use
  Company Number: US-AMGEN-USASP2012062200

PATIENT
  Age: 61 Year
  Sex: Female
  Weight: 113.38 kg

DRUGS (21)
  1. ENBREL [Suspect]
     Indication: RHEUMATOID ARTHRITIS
     Dosage: 50 MG, QWK
     Route: 058
  2. METFORMIN [Concomitant]
     Dosage: 500 MG, UNK
  3. LANTUS [Concomitant]
     Dosage: 100/ML
  4. ACCUPRIL [Concomitant]
     Dosage: 5 MG, UNK
  5. LASIX                              /00032601/ [Concomitant]
     Dosage: 20 MG, UNK
  6. COUMADINE [Concomitant]
     Dosage: 2.5 MG, UNK
  7. NORVASC [Concomitant]
     Dosage: 2.5 MG, UNK
  8. METHOTREXATE [Concomitant]
     Dosage: 2.5 MG, UNK
  9. SIMVASTATIN [Concomitant]
     Dosage: 5 MG, UNK
  10. LYRICA [Concomitant]
     Dosage: 25 MG, UNK
  11. PREDNISONE [Concomitant]
     Dosage: 2.5 MG, UNK
  12. FOLIC ACID [Concomitant]
     Dosage: 1 MG, UNK
  13. OMEPRAZOLE [Concomitant]
     Dosage: 10 MG, UNK
  14. LUMIGAN [Concomitant]
     Dosage: SOL 0.01%
  15. MULTIVITAMIN                       /00097801/ [Concomitant]
     Dosage: UNK
  16. CALCIUM [Concomitant]
     Dosage: 500 MG, UNK
  17. VITAMIN C                          /00008001/ [Concomitant]
     Dosage: 500 MG, UNK
  18. FISH OIL [Concomitant]
     Dosage: UNK
  19. HUMALOG [Concomitant]
     Dosage: 100/ML
  20. ORENCIA [Concomitant]
     Dosage: 125 MG/ML
  21. SYMLINPEN 60 [Concomitant]
     Dosage: 1000 MUG, UNK

REACTIONS (1)
  - Drug ineffective [Unknown]
